FAERS Safety Report 9432875 (Version 1)
Quarter: 2013Q3

REPORT INFORMATION
  Report Type: Spontaneous
  Country: DE (occurrence: DE)
  Receive Date: 20130731
  Receipt Date: 20130731
  Transmission Date: 20140515
  Serious: Yes (Hospitalization, Disabling)
  Sender: FDA-Public Use
  Company Number: PHHY2013DE079259

PATIENT
  Age: 19 Year
  Sex: Female
  Weight: 58 kg

DRUGS (1)
  1. EVEROLIMUS [Suspect]
     Indication: HEART TRANSPLANT
     Dosage: UNK UKN, UNK
     Dates: start: 2008

REACTIONS (9)
  - Enterocolitis [Recovered/Resolved with Sequelae]
  - Acute abdomen [Recovered/Resolved with Sequelae]
  - Anal fistula [Recovered/Resolved with Sequelae]
  - Vasculitis [Recovered/Resolved with Sequelae]
  - Amenorrhoea [Recovered/Resolved with Sequelae]
  - Alopecia [Recovered/Resolved with Sequelae]
  - Acne [Recovered/Resolved with Sequelae]
  - Mastitis [Recovered/Resolved with Sequelae]
  - Rectal abscess [Recovered/Resolved with Sequelae]
